FAERS Safety Report 16649730 (Version 1)
Quarter: 2019Q3

REPORT INFORMATION
  Report Type: Spontaneous
  Country: DK (occurrence: DK)
  Receive Date: 20190730
  Receipt Date: 20190730
  Transmission Date: 20191004
  Serious: Yes (Other)
  Sender: FDA-Public Use
  Company Number: DK-BAXTER-2019BAX014462

PATIENT
  Age: 40 Year
  Sex: Female

DRUGS (2)
  1. SENDOXAN [Suspect]
     Active Substance: CYCLOPHOSPHAMIDE
     Indication: INVASIVE DUCTAL BREAST CARCINOMA
     Dosage: ADMINISTERED: 19JUN2018 (BATCH: 7J138E), 9JUL2018 (BATCH: 8B152C), AND 30JUL2018. (BATCH: 8B152C), F
     Route: 042
     Dates: start: 20180619, end: 20180730
  2. EPIRUBICIN ACCORD [Suspect]
     Active Substance: EPIRUBICIN HYDROCHLORIDE
     Indication: INVASIVE DUCTAL BREAST CARCINOMA
     Dosage: STRENGTH: 2 MG/ML  ADMINISTRATION: 19JUL2018, 9JUL2018, AND 30JUL2018, FIRST INFUSION IN VENFLON, SE
     Route: 042
     Dates: start: 20180619, end: 20180730

REACTIONS (9)
  - Infusion site erythema [Recovered/Resolved]
  - Localised oedema [Unknown]
  - Infusion site induration [Unknown]
  - Infusion site pain [Recovered/Resolved]
  - Skin tightness [Unknown]
  - Infusion site thrombosis [Unknown]
  - Infusion site irritation [Recovered/Resolved]
  - Thrombophlebitis superficial [Unknown]
  - Oedema peripheral [Recovered/Resolved]

NARRATIVE: CASE EVENT DATE: 2018
